FAERS Safety Report 8593775-1 (Version None)
Quarter: 2012Q3

REPORT INFORMATION
  Report Type: 
  Country: None (occurrence: None)
  Receive Date: 20120814
  Receipt Date: 20120807
  Transmission Date: 20120928
  Serious: Yes (Death)
  Sender: FDA-Public Use
  Company Number: JP-CELGENEUS-087-50794-12081388

PATIENT
  Age: 74 Year
  Sex: Male
  Weight: 62 kg

DRUGS (6)
  1. VIDAZA [Suspect]
     Dosage: 75 MILLIGRAM/SQ. METER
     Route: 041
     Dates: start: 20120427, end: 20120503
  2. VERAPAMIL HCL [Concomitant]
     Route: 065
     Dates: end: 20120603
  3. ALLOPURINOL [Concomitant]
     Route: 065
     Dates: end: 20120603
  4. CEFEPIME [Concomitant]
     Route: 065
     Dates: start: 20120601, end: 20120605
  5. MEROPENEM [Concomitant]
     Route: 065
     Dates: start: 20120605, end: 20120611
  6. PRADAXA [Concomitant]
     Route: 065
     Dates: end: 20120603

REACTIONS (1)
  - PNEUMONIA [None]
